FAERS Safety Report 14008944 (Version 1)
Quarter: 2017Q3

REPORT INFORMATION
  Report Type: Spontaneous
  Country: SV (occurrence: SV)
  Receive Date: 20170925
  Receipt Date: 20170925
  Transmission Date: 20171128
  Serious: Yes (Other)
  Sender: FDA-Public Use
  Company Number: SV-CMP PHARMA-2017CMP00028

PATIENT
  Age: 81 Year
  Sex: Male

DRUGS (2)
  1. ISONIAZID/RIFAMPIN/ETHAMBUTOL/PYRAZINAMIDE [Suspect]
     Active Substance: ETHAMBUTOL\ISONIAZID\PYRAZINAMIDE\RIFAMYCIN
     Indication: PULMONARY TUBERCULOSIS
     Dosage: 3 DOSAGE UNITS, 1X/DAY
     Route: 065
  2. ENALAPRIL [Concomitant]
     Active Substance: ENALAPRIL
     Dosage: 20 MG, 1X/DAY
     Route: 065

REACTIONS (1)
  - Myoclonus [Recovered/Resolved]
